FAERS Safety Report 18253028 (Version 2)
Quarter: 2021Q1

REPORT INFORMATION
  Report Type: Spontaneous
  Country: US (occurrence: US)
  Receive Date: 20200910
  Receipt Date: 20210224
  Transmission Date: 20210419
  Serious: Yes (Other)
  Sender: FDA-Public Use
  Company Number: US-GILEAD-2020-0494297

PATIENT
  Sex: Male
  Weight: 101.6 kg

DRUGS (72)
  1. TRIAMCINOLONE [Concomitant]
     Active Substance: TRIAMCINOLONE
  2. CLARITHROMYCIN. [Concomitant]
     Active Substance: CLARITHROMYCIN
  3. DAPSONE. [Concomitant]
     Active Substance: DAPSONE
  4. DICLOXACILLIN [Concomitant]
     Active Substance: DICLOXACILLIN
  5. LEVOFLOXACIN. [Concomitant]
     Active Substance: LEVOFLOXACIN
  6. MOXIFLOXACIN. [Concomitant]
     Active Substance: MOXIFLOXACIN
  7. PITAVASTATIN. [Concomitant]
     Active Substance: PITAVASTATIN CALCIUM
  8. EPZICOM [Concomitant]
     Active Substance: ABACAVIR SULFATE\LAMIVUDINE
     Indication: HIV INFECTION
  9. DOXYCYCLINE. [Concomitant]
     Active Substance: DOXYCYCLINE
  10. MODAFINIL. [Concomitant]
     Active Substance: MODAFINIL
  11. VALACYCLOVIR [Concomitant]
     Active Substance: VALACYCLOVIR HYDROCHLORIDE
  12. ARIPRAZOLE [Concomitant]
     Active Substance: ARIPIPRAZOLE
  13. IBUPROFEN. [Concomitant]
     Active Substance: IBUPROFEN
  14. TRAMADOL HCL [Concomitant]
     Active Substance: TRAMADOL HYDROCHLORIDE
  15. VIREAD [Suspect]
     Active Substance: TENOFOVIR DISOPROXIL FUMARATE
     Indication: HIV INFECTION
     Dosage: UNK
     Route: 048
     Dates: start: 20061023, end: 200706
  16. PREZCOBIX [Concomitant]
     Active Substance: COBICISTAT\DARUNAVIR ETHANOLATE
     Indication: HIV INFECTION
  17. AZITHROMYCIN ANHYDROUS. [Concomitant]
     Active Substance: AZITHROMYCIN ANHYDROUS
  18. BECLOMETHASONE [Concomitant]
     Active Substance: BECLOMETHASONE
  19. DIVALPROEX [Concomitant]
     Active Substance: DIVALPROEX SODIUM
  20. PANTOPRAZOLE [Concomitant]
     Active Substance: PANTOPRAZOLE
  21. ACETAMINOPHEN AND CODEINE [Concomitant]
     Active Substance: ACETAMINOPHEN\CODEINE PHOSPHATE
  22. DEPAKOTE ER [Concomitant]
     Active Substance: DIVALPROEX SODIUM
  23. PREZISTA [Concomitant]
     Active Substance: DARUNAVIR ETHANOLATE
     Indication: HIV INFECTION
  24. BENZONATATE. [Concomitant]
     Active Substance: BENZONATATE
  25. FLUCONAZOLE. [Concomitant]
     Active Substance: FLUCONAZOLE
  26. GUAIFENESIN AC SYRUP [Concomitant]
  27. HYDROXYZINE [Concomitant]
     Active Substance: HYDROXYZINE HYDROCHLORIDE
  28. IMIQUIMOD. [Concomitant]
     Active Substance: IMIQUIMOD
  29. MINOCYCLINE [Concomitant]
     Active Substance: MINOCYCLINE HYDROCHLORIDE
  30. ALBENZA [Concomitant]
     Active Substance: ALBENDAZOLE
  31. DESCOVY [Concomitant]
     Active Substance: EMTRICITABINE\TENOFOVIR ALAFENAMIDE FUMARATE
     Indication: HIV INFECTION
  32. TERBINAFINE. [Concomitant]
     Active Substance: TERBINAFINE
  33. IPRATROPIUM INH [Concomitant]
  34. BUPROPION. [Concomitant]
     Active Substance: BUPROPION
  35. HYDROCODONE BITARTRATE AND ACETAMINOPHEN [Concomitant]
     Active Substance: ACETAMINOPHEN\HYDROCODONE BITARTRATE
  36. HCTZ [Concomitant]
     Active Substance: HYDROCHLOROTHIAZIDE
  37. METOPROLOL. [Concomitant]
     Active Substance: METOPROLOL
  38. CHLORTHALIDONE. [Concomitant]
     Active Substance: CHLORTHALIDONE
  39. CHLORHEXIDINE [Concomitant]
     Active Substance: CHLORHEXIDINE
  40. VOLTAREN [Concomitant]
     Active Substance: DICLOFENAC SODIUM
  41. TRUVADA [Suspect]
     Active Substance: EMTRICITABINE\TENOFOVIR DISOPROXIL FUMARATE
     Indication: HIV INFECTION
     Dosage: UNK
     Route: 048
     Dates: start: 2004
  42. TRUVADA [Suspect]
     Active Substance: EMTRICITABINE\TENOFOVIR DISOPROXIL FUMARATE
     Dosage: UNK
     Route: 048
     Dates: start: 2010, end: 201707
  43. REYATAZ [Concomitant]
     Active Substance: ATAZANAVIR SULFATE
     Indication: HIV INFECTION
  44. LORAZEPAM. [Concomitant]
     Active Substance: LORAZEPAM
  45. METHYLPHENIDATE. [Concomitant]
     Active Substance: METHYLPHENIDATE
  46. NAPROXEN. [Concomitant]
     Active Substance: NAPROXEN
  47. PROMETHAZINE [Concomitant]
     Active Substance: PROMETHAZINE HYDROCHLORIDE
  48. CYCLOBENZAPRINE. [Concomitant]
     Active Substance: CYCLOBENZAPRINE
  49. VENTOLIN HFA [Concomitant]
     Active Substance: ALBUTEROL SULFATE
  50. VIAGRA [Concomitant]
     Active Substance: SILDENAFIL CITRATE
  51. ZYRTEC [Concomitant]
     Active Substance: CETIRIZINE HYDROCHLORIDE
  52. NORVIR [Concomitant]
     Active Substance: RITONAVIR
     Indication: HIV INFECTION
  53. TIVICAY [Concomitant]
     Active Substance: DOLUTEGRAVIR SODIUM
     Indication: HIV INFECTION
  54. LOSARTAN. [Concomitant]
     Active Substance: LOSARTAN
  55. CHANTIX [Concomitant]
     Active Substance: VARENICLINE TARTRATE
  56. SULINDAC. [Concomitant]
     Active Substance: SULINDAC
  57. TRAZODONE [Concomitant]
     Active Substance: TRAZODONE HYDROCHLORIDE
  58. ALBUTEROL HFA [Concomitant]
     Active Substance: ALBUTEROL SULFATE
  59. DARUNAVIR [Concomitant]
     Active Substance: DARUNAVIR
     Indication: HIV INFECTION
  60. ETODOLAC. [Concomitant]
     Active Substance: ETODOLAC
  61. RANITIDINE. [Concomitant]
     Active Substance: RANITIDINE
  62. CIALIS [Concomitant]
     Active Substance: TADALAFIL
  63. CARDURA [Concomitant]
     Active Substance: DOXAZOSIN MESYLATE
  64. DICLOFENAC SODIUM. [Concomitant]
     Active Substance: DICLOFENAC SODIUM
  65. TEMAZEPAM. [Concomitant]
     Active Substance: TEMAZEPAM
  66. AMLODIPINE [Concomitant]
     Active Substance: AMLODIPINE BESYLATE
  67. BACLOFEN. [Concomitant]
     Active Substance: BACLOFEN
  68. GABAPENTIN. [Concomitant]
     Active Substance: GABAPENTIN
  69. LIDOCAINE. [Concomitant]
     Active Substance: LIDOCAINE
  70. PERMETHRIN. [Concomitant]
     Active Substance: PERMETHRIN
  71. SMZ?TMP [Concomitant]
     Active Substance: SULFAMETHOXAZOLE\TRIMETHOPRIM
  72. STRATTERA [Concomitant]
     Active Substance: ATOMOXETINE HYDROCHLORIDE

REACTIONS (9)
  - Osteoporosis [Not Recovered/Not Resolved]
  - Multiple fractures [Recovered/Resolved]
  - Anxiety [Unknown]
  - Emotional distress [Unknown]
  - Anhedonia [Unknown]
  - Hyperphosphaturia [Not Recovered/Not Resolved]
  - Chronic kidney disease [Not Recovered/Not Resolved]
  - Pain [Unknown]
  - Ankle fracture [Unknown]

NARRATIVE: CASE EVENT DATE: 2017
